FAERS Safety Report 9826960 (Version 1)
Quarter: 2014Q1

REPORT INFORMATION
  Report Type: Spontaneous
  Country: US (occurrence: US)
  Receive Date: 20140117
  Receipt Date: 20140117
  Transmission Date: 20141002
  Serious: No
  Sender: FDA-Public Use
  Company Number: US-GLAXOSMITHKLINE-A1021860A

PATIENT
  Sex: Male

DRUGS (2)
  1. PROMACTA [Suspect]
     Indication: MYELODYSPLASTIC SYNDROME
     Route: 048
  2. LENALIDOMIDE [Concomitant]

REACTIONS (3)
  - Headache [Unknown]
  - Abdominal discomfort [Unknown]
  - Back pain [Unknown]
